FAERS Safety Report 9673523 (Version 2)
Quarter: 2014Q1

REPORT INFORMATION
  Report Type: Spontaneous
  Country: US (occurrence: US)
  Receive Date: 20131106
  Receipt Date: 20140203
  Transmission Date: 20141002
  Serious: No
  Sender: FDA-Public Use
  Company Number: US-AMGEN-USASP2013074031

PATIENT
  Age: 67 Year
  Sex: Male

DRUGS (1)
  1. ENBREL [Suspect]
     Indication: PSORIASIS
     Dosage: 50 MG, QWK
     Route: 065
     Dates: start: 20130801, end: 2013

REACTIONS (4)
  - Urticaria [Not Recovered/Not Resolved]
  - Adverse drug reaction [Recovered/Resolved]
  - Skin mass [Not Recovered/Not Resolved]
  - Psoriasis [Not Recovered/Not Resolved]
